FAERS Safety Report 5493998-4 (Version None)
Quarter: 2007Q4

REPORT INFORMATION
  Report Type: 
  Country: None (occurrence: None)
  Receive Date: 20071023
  Receipt Date: 20071011
  Transmission Date: 20080405
  Serious: Yes (Other)
  Sender: FDA-Public Use
  Company Number: GB-PFIZER INC-2007076623

PATIENT
  Sex: Male

DRUGS (13)
  1. VIRACEPT [Suspect]
     Route: 048
     Dates: start: 20010717, end: 20070607
  2. NOVORAPID [Concomitant]
  3. VIDEX [Concomitant]
  4. INSULATARD [Concomitant]
  5. CELECOXIB [Concomitant]
  6. LISINOPRIL [Concomitant]
  7. EZETIMIBE [Concomitant]
  8. VITAMIN B COMPLEX CAP [Concomitant]
  9. LORMETAZEPAM [Concomitant]
  10. HYDROXYZINE [Concomitant]
  11. CHLORPHENIRAMINE MALEATE [Concomitant]
  12. ABACAVIR SULFATE [Concomitant]
  13. DDI [Concomitant]

REACTIONS (1)
  - CD4 LYMPHOCYTES DECREASED [None]
